FAERS Safety Report 10217304 (Version 1)
Quarter: 2014Q2

REPORT INFORMATION
  Report Type: Report from Study
  Country: JP (occurrence: JP)
  Receive Date: 20140604
  Receipt Date: 20140604
  Transmission Date: 20141212
  Serious: Yes (Hospitalization)
  Sender: FDA-Public Use
  Company Number: JP-EISAI INC-E2020-14106-SOL-JP

PATIENT
  Age: 89 Year
  Sex: Male

DRUGS (4)
  1. ARICEPT [Suspect]
     Indication: DEMENTIA ALZHEIMER^S TYPE
     Route: 048
     Dates: start: 20110816, end: 20110822
  2. ARICEPT [Suspect]
     Route: 048
     Dates: start: 20110823, end: 20121211
  3. ARICEPT [Suspect]
     Route: 048
     Dates: start: 20121212, end: 20130821
  4. MEMARY [Concomitant]

REACTIONS (2)
  - Paraphilia [Recovering/Resolving]
  - Restlessness [Recovering/Resolving]
